FAERS Safety Report 11402567 (Version 1)
Quarter: 2015Q3

REPORT INFORMATION
  Report Type: Spontaneous
  Country: US (occurrence: US)
  Receive Date: 20150821
  Receipt Date: 20150821
  Transmission Date: 20151125
  Serious: No
  Sender: FDA-Public Use
  Company Number: US-ROCHE-1299839

PATIENT
  Age: 30 Year
  Sex: Female

DRUGS (3)
  1. PEGASYS [Suspect]
     Active Substance: PEGINTERFERON ALFA-2A
     Indication: HEPATITIS C
     Dosage: 180MCG/0.5ML
     Route: 058
     Dates: start: 201305
  2. VICTRELIS [Concomitant]
     Active Substance: BOCEPREVIR
     Dosage: STANDARD WITH FOOD
     Route: 048
  3. RIBASPHERE [Concomitant]
     Active Substance: RIBAVIRIN
     Dosage: 600MG
     Route: 048

REACTIONS (3)
  - Feeding disorder [Not Recovered/Not Resolved]
  - Nausea [Not Recovered/Not Resolved]
  - Alopecia [Unknown]

NARRATIVE: CASE EVENT DATE: 20131102
